FAERS Safety Report 25942905 (Version 1)
Quarter: 2025Q4

REPORT INFORMATION
  Report Type: Spontaneous
  Country: US (occurrence: US)
  Receive Date: 20251021
  Receipt Date: 20251021
  Transmission Date: 20260117
  Serious: No
  Sender: SOLENO THERAPEUTICS
  Company Number: US-SOLENO THERAPEUTICS, INC.-SOL2025000205

PATIENT
  Age: 20 Year
  Sex: Female

DRUGS (3)
  1. VYKAT XR [Suspect]
     Active Substance: DIAZOXIDE CHOLINE
     Indication: Hyperphagia
     Dosage: 150 MILLIGRAM, QD
     Route: 048
  2. VYKAT XR [Suspect]
     Active Substance: DIAZOXIDE CHOLINE
     Dosage: 300 MILLIGRAM, QD
     Route: 048
  3. VYKAT XR [Suspect]
     Active Substance: DIAZOXIDE CHOLINE
     Dosage: 150 MILLIGRAM, QD
     Route: 048

REACTIONS (2)
  - Oedema [Unknown]
  - Blood glucose increased [Unknown]
